FAERS Safety Report 6461737-6 (Version None)
Quarter: 2009Q4

REPORT INFORMATION
  Report Type: 
  Country: None (occurrence: None)
  Receive Date: 20091130
  Receipt Date: 20091116
  Transmission Date: 20100525
  Serious: Yes (Hospitalization, Other)
  Sender: FDA-Public Use
  Company Number: PHHY2009BR50457

PATIENT
  Sex: Male
  Weight: 106 kg

DRUGS (18)
  1. TEGRETOL [Suspect]
     Indication: SCHIZOPHRENIA
     Dosage: 1 DF, DAILY
     Dates: start: 20040101
  2. TEGRETOL [Interacting]
     Dosage: 200 MG, EVERY 12 HOURS,BID,2 TABLETS DAILY.
  3. TEGRETOL [Interacting]
     Dosage: 400 MG, EVERY 12 HOURS, BID
     Dates: start: 20091117
  4. GEODON [Interacting]
     Dosage: 1 DF, DAILY
     Dates: start: 20080401
  5. RISPERIDONE [Concomitant]
     Dosage: UNK
  6. RISPERIDONE [Concomitant]
     Dosage: 1 DF, DAILY
     Dates: start: 20060101, end: 20070101
  7. HALDOL [Concomitant]
     Dosage: UNK
     Dates: start: 20070101
  8. ZYPREXA [Concomitant]
     Dosage: QID
  9. ZYPREXA [Concomitant]
     Dosage: MAXIMUM DOSAGE
     Dates: start: 20071001, end: 20080401
  10. RIVOTRIL [Concomitant]
     Dosage: 5 DROPS, DAILY
  11. RIVOTRIL [Concomitant]
     Dosage: 60 DRP, DAILY
     Dates: start: 20080501
  12. NEOZINE [Concomitant]
     Dosage: 25 MG, AT NIGHT
  13. NEOZINE [Concomitant]
     Dosage: 100 MG, UNK
  14. PAROXETINE HCL [Concomitant]
     Dosage: 1 DF, BID
  15. AMPLICTIL [Concomitant]
     Dosage: 2 DF, AT NIGHT
  16. SERTRALINE HCL [Concomitant]
     Dosage: 50 MG, BID
     Dates: start: 20050101, end: 20080801
  17. BIPERIDEN HYDROCHLORIDE TAB [Concomitant]
  18. PONDERA [Concomitant]

REACTIONS (18)
  - AGGRESSION [None]
  - BLOOD CHOLESTEROL INCREASED [None]
  - BLOOD TRIGLYCERIDES INCREASED [None]
  - CRYING [None]
  - DELUSION [None]
  - DEPRESSION [None]
  - DRUG LEVEL DECREASED [None]
  - HALLUCINATION, AUDITORY [None]
  - HALLUCINATIONS, MIXED [None]
  - INSOMNIA [None]
  - MENTAL DISORDER [None]
  - MOOD SWINGS [None]
  - PANIC ATTACK [None]
  - PANIC DISORDER [None]
  - PSYCHOTIC DISORDER [None]
  - SUICIDE ATTEMPT [None]
  - WEIGHT INCREASED [None]
  - WHITE BLOOD CELL COUNT INCREASED [None]
